FAERS Safety Report 11456140 (Version 2)
Quarter: 2015Q3

REPORT INFORMATION
  Report Type: Report from Study
  Country: US (occurrence: US)
  Receive Date: 20150903
  Receipt Date: 20150910
  Transmission Date: 20151125
  Serious: No
  Sender: FDA-Public Use
  Company Number: PHEH2015US016636

PATIENT
  Age: 2 Year
  Sex: Female
  Weight: 13.22 kg

DRUGS (1)
  1. EXJADE [Suspect]
     Active Substance: DEFERASIROX
     Indication: THALASSAEMIA BETA
     Dosage: 20 MG/KG, QD
     Route: 048
     Dates: start: 20150817, end: 20150821

REACTIONS (2)
  - Strabismus [Recovered/Resolved]
  - Excessive eye blinking [Recovered/Resolved]

NARRATIVE: CASE EVENT DATE: 20150817
